FAERS Safety Report 16148216 (Version 1)
Quarter: 2019Q2

REPORT INFORMATION
  Report Type: Spontaneous
  Country: US (occurrence: US)
  Receive Date: 20190402
  Receipt Date: 20190402
  Transmission Date: 20190711
  Serious: Yes (Other)
  Sender: FDA-Public Use
  Company Number: US-BAYER-2019-060397

PATIENT
  Sex: Female

DRUGS (1)
  1. BETASERON [Suspect]
     Active Substance: INTERFERON BETA-1B
     Dosage: UNK

REACTIONS (12)
  - Dementia [None]
  - Depression [None]
  - Dysphagia [None]
  - Rhinorrhoea [None]
  - Weight decreased [None]
  - Multiple sclerosis [None]
  - Feeding disorder [None]
  - Motor dysfunction [None]
  - Asthenia [None]
  - Infrequent bowel movements [None]
  - Gait disturbance [None]
  - Dysstasia [None]
